FAERS Safety Report 23821445 (Version 1)
Quarter: 2024Q2

REPORT INFORMATION
  Report Type: Spontaneous
  Country: US (occurrence: None)
  Receive Date: 20240504
  Receipt Date: 20240504
  Transmission Date: 20240716
  Serious: Yes (Disabling, Other)
  Sender: FDA-Public Use
  Company Number: None

PATIENT
  Age: 46 Year
  Sex: Female
  Weight: 65.25 kg

DRUGS (5)
  1. ESKETAMINE [Suspect]
     Active Substance: ESKETAMINE
     Indication: Post-traumatic stress disorder
     Dosage: OTHER FREQUENCY : TWO TIMES A WEEK;?
     Route: 055
     Dates: start: 20231127, end: 20231222
  2. LEXAPRO [Concomitant]
     Active Substance: ESCITALOPRAM OXALATE
  3. GABAPENTIN [Concomitant]
     Active Substance: GABAPENTIN
  4. TRAZODONE [Concomitant]
     Active Substance: TRAZODONE HYDROCHLORIDE
  5. LORAZEPAM [Concomitant]
     Active Substance: LORAZEPAM

REACTIONS (4)
  - Suicidal ideation [None]
  - Anxiety [None]
  - Impaired work ability [None]
  - Brain injury [None]

NARRATIVE: CASE EVENT DATE: 20231227
